FAERS Safety Report 24823950 (Version 2)
Quarter: 2025Q3

REPORT INFORMATION
  Report Type: Spontaneous
  Country: US (occurrence: US)
  Receive Date: 20250109
  Receipt Date: 20250813
  Transmission Date: 20251021
  Serious: Yes (Other)
  Sender: COOPERSURGICAL
  Company Number: US-COOPERSURGICAL, INC.-2024CPS004259

PATIENT
  Age: 29 Year
  Sex: Female
  Weight: 114.74 kg

DRUGS (1)
  1. PARAGARD T 380A [Suspect]
     Active Substance: COPPER
     Route: 015
     Dates: start: 20180621

REACTIONS (16)
  - Abortion spontaneous incomplete [Recovered/Resolved]
  - Surgery [Recovered/Resolved]
  - Loop electrosurgical excision procedure [Recovered/Resolved]
  - Complication of device removal [Recovered/Resolved]
  - Embedded device [Recovered/Resolved]
  - Perineal pain [Unknown]
  - Pelvic pain [Unknown]
  - Abnormal uterine bleeding [Recovered/Resolved]
  - Back pain [Recovered/Resolved]
  - Device dislocation [Recovered/Resolved]
  - Dysmenorrhoea [Unknown]
  - Endometrial thickening [Unknown]
  - Smear cervix abnormal [Unknown]
  - Dyspareunia [Unknown]
  - Menstruation irregular [Unknown]
  - Muscle spasms [Unknown]

NARRATIVE: CASE EVENT DATE: 20191201
